FAERS Safety Report 7231482-8 (Version None)
Quarter: 2011Q1

REPORT INFORMATION
  Report Type: 
  Country: None (occurrence: None)
  Receive Date: 20110118
  Receipt Date: 20110117
  Transmission Date: 20110831
  Serious: Yes (Other)
  Sender: FDA-Public Use
  Company Number: US-ROXANE LABORATORIES, INC.-2011-RO-00066RO

PATIENT
  Age: 76 Year
  Sex: Female
  Weight: 68 kg

DRUGS (2)
  1. FLUCONAZOLE [Suspect]
     Indication: MENINGITIS COCCIDIOIDES
     Dosage: 1200 MG
     Route: 048
  2. FLUCONAZOLE [Suspect]
     Dosage: 1000 MG
     Route: 048

REACTIONS (2)
  - CYSTOID MACULAR OEDEMA [None]
  - TOXICITY TO VARIOUS AGENTS [None]
